FAERS Safety Report 16704263 (Version 2)
Quarter: 2019Q4

REPORT INFORMATION
  Report Type: Spontaneous
  Country: US (occurrence: US)
  Receive Date: 20190814
  Receipt Date: 20191007
  Transmission Date: 20200122
  Serious: Yes (Hospitalization)
  Sender: FDA-Public Use
  Company Number: US-ENDO PHARMACEUTICALS INC-2019-107202

PATIENT
  Age: 68 Year
  Sex: Male
  Weight: 102.4 kg

DRUGS (16)
  1. XIAFLEX [Suspect]
     Active Substance: COLLAGENASE CLOSTRIDIUM HISTOLYTICUM
     Dosage: 0.58 MG, UNKNOWN; CYCLE THREE, INJECTION TWO
     Route: 026
     Dates: start: 20190923
  2. SIMVASTATIN. [Concomitant]
     Active Substance: SIMVASTATIN
     Indication: BLOOD CHOLESTEROL INCREASED
     Dosage: 20 MG, DAILY; AT BEDTIME
     Dates: start: 2014
  3. XIAFLEX [Suspect]
     Active Substance: COLLAGENASE CLOSTRIDIUM HISTOLYTICUM
     Dosage: 0.58 MG, UNKNOWN; CYCLE ONE, INJECTION TWO
     Route: 026
     Dates: start: 20190429
  4. LOSARTAN POTASSIUM. [Concomitant]
     Active Substance: LOSARTAN POTASSIUM
     Indication: MITRAL VALVE PROLAPSE
     Dosage: 50 MG, DAILY
     Route: 065
     Dates: start: 2012
  5. TRILEPTAL [Concomitant]
     Active Substance: OXCARBAZEPINE
     Indication: SEIZURE
     Dosage: 300 MG, BID; 3 TABLETS IN AM AND PM
     Dates: start: 2003
  6. BISOPROLOL [Concomitant]
     Active Substance: BISOPROLOL
     Indication: MITRAL VALVE PROLAPSE
     Dosage: 5 MG, DAILY
     Route: 065
     Dates: start: 2012
  7. GARLIC                             /01570501/ [Concomitant]
     Active Substance: GARLIC
     Indication: BLOOD CHOLESTEROL
     Dosage: 600 MG, BID 1 TABLET IN AM; 2 TABLETS IN PM
     Route: 065
     Dates: start: 2017
  8. XIAFLEX [Suspect]
     Active Substance: COLLAGENASE CLOSTRIDIUM HISTOLYTICUM
     Indication: PEYRONIE^S DISEASE
     Dosage: 0.58 MG, UNKNOWN; CYCLE ONE, INJECTION ONE
     Route: 026
     Dates: start: 20190426
  9. XIAFLEX [Suspect]
     Active Substance: COLLAGENASE CLOSTRIDIUM HISTOLYTICUM
     Dosage: 0.58 MG, UNKNOWN; CYCLE TWO, INJECTION ONE
     Route: 026
     Dates: start: 20190730
  10. MELATONIN [Concomitant]
     Active Substance: MELATONIN
     Indication: SLEEP DISORDER
     Dosage: 2.5 MG, DAILY AT BEDTIME
     Route: 065
     Dates: start: 2016
  11. XARELTO [Concomitant]
     Active Substance: RIVAROXABAN
     Indication: MITRAL VALVE PROLAPSE
     Dosage: 20 MG, UNK; IN THE EVENING
     Route: 065
     Dates: start: 2017
  12. KEPPRA XR [Concomitant]
     Active Substance: LEVETIRACETAM
     Indication: SEIZURE
     Dosage: 500 MG, UNKNOWN; 2 TABLETS IN AM; ONE TABLET IN PM
     Route: 065
     Dates: start: 2003
  13. XIAFLEX [Suspect]
     Active Substance: COLLAGENASE CLOSTRIDIUM HISTOLYTICUM
     Dosage: 0.58 MG, UNKNOWN; CYCLE TWO, INJECTION TWO
     Route: 026
     Dates: start: 20190805
  14. XIAFLEX [Suspect]
     Active Substance: COLLAGENASE CLOSTRIDIUM HISTOLYTICUM
     Dosage: 0.58 MG, UNKNOWN; CYCLE THREE, INJECTION ONE
     Route: 026
     Dates: start: 20190913
  15. CLONAZEPAM. [Concomitant]
     Active Substance: CLONAZEPAM
     Indication: SEIZURE
     Dosage: 1 MG, UNK
     Route: 065
     Dates: start: 2003
  16. FISH OIL [Concomitant]
     Active Substance: FISH OIL
     Indication: PRODUCT USED FOR UNKNOWN INDICATION
     Dosage: 1200 MG, UNKNOWN; EVERY OTHER DAY
     Route: 065
     Dates: start: 2001

REACTIONS (9)
  - Pyrexia [Recovered/Resolved]
  - Blood sodium decreased [Recovered/Resolved]
  - Influenza like illness [Recovered/Resolved]
  - Injection site swelling [Recovered/Resolved]
  - Penile contusion [Recovered/Resolved]
  - Injection site bruising [Unknown]
  - Chills [Recovered/Resolved]
  - Penile swelling [Recovered/Resolved]
  - Back pain [Recovered/Resolved]

NARRATIVE: CASE EVENT DATE: 20190405
